FAERS Safety Report 5472699-2 (Version None)
Quarter: 2007Q4

REPORT INFORMATION
  Report Type: 
  Country: None (occurrence: None)
  Receive Date: 20071001
  Receipt Date: 20061002
  Transmission Date: 20080405
  Serious: No
  Sender: FDA-Public Use
  Company Number: US-ASTRAZENECA-2006UW19073

PATIENT
  Age: 51 Year
  Sex: Female
  Weight: 89.8 kg

DRUGS (1)
  1. ARIMIDEX [Suspect]
     Indication: BREAST CANCER
     Route: 048

REACTIONS (5)
  - ABNORMAL DREAMS [None]
  - HOT FLUSH [None]
  - INSOMNIA [None]
  - MOOD SWINGS [None]
  - WEIGHT INCREASED [None]
